FAERS Safety Report 22824105 (Version 2)
Quarter: 2025Q3

REPORT INFORMATION
  Report Type: Spontaneous
  Country: EU (occurrence: EU)
  Receive Date: 20230815
  Receipt Date: 20250819
  Transmission Date: 20251020
  Serious: Yes (Life-Threatening, Other)
  Sender: MYLAN
  Company Number: EU-DCGMA-22198346

PATIENT
  Age: 81 Year
  Sex: Female
  Weight: 63 kg

DRUGS (20)
  1. CELEBREX [Suspect]
     Active Substance: CELECOXIB
     Indication: Prophylaxis
     Dosage: 200 MILLIGRAM, BID (2X200 MG)
     Dates: start: 20220407, end: 20220503
  2. CELEBREX [Suspect]
     Active Substance: CELECOXIB
     Dosage: 200 MILLIGRAM, BID (2X200 MG)
     Route: 048
     Dates: start: 20220407, end: 20220503
  3. CELEBREX [Suspect]
     Active Substance: CELECOXIB
     Dosage: 200 MILLIGRAM, BID (2X200 MG)
     Route: 048
     Dates: start: 20220407, end: 20220503
  4. CELEBREX [Suspect]
     Active Substance: CELECOXIB
     Dosage: 200 MILLIGRAM, BID (2X200 MG)
     Dates: start: 20220407, end: 20220503
  5. ELIQUIS [Suspect]
     Active Substance: APIXABAN
     Indication: Thrombosis prophylaxis
     Dosage: 2.5 MILLIGRAM, BID (2X 2.5 MG)
     Dates: start: 20220416, end: 20220503
  6. ELIQUIS [Suspect]
     Active Substance: APIXABAN
     Dosage: 2.5 MILLIGRAM, BID (2X 2.5 MG)
     Route: 048
     Dates: start: 20220416, end: 20220503
  7. ELIQUIS [Suspect]
     Active Substance: APIXABAN
     Dosage: 2.5 MILLIGRAM, BID (2X 2.5 MG)
     Route: 048
     Dates: start: 20220416, end: 20220503
  8. ELIQUIS [Suspect]
     Active Substance: APIXABAN
     Dosage: 2.5 MILLIGRAM, BID (2X 2.5 MG)
     Dates: start: 20220416, end: 20220503
  9. METAMIZOLE [Concomitant]
     Active Substance: METAMIZOLE
     Indication: Procedural pain
     Dosage: 500 MILLIGRAM, TID (3 X 500 MG)
     Dates: start: 20220416, end: 20220503
  10. METAMIZOLE [Concomitant]
     Active Substance: METAMIZOLE
     Dosage: 500 MILLIGRAM, TID (3 X 500 MG)
     Route: 048
     Dates: start: 20220416, end: 20220503
  11. METAMIZOLE [Concomitant]
     Active Substance: METAMIZOLE
     Dosage: 500 MILLIGRAM, TID (3 X 500 MG)
     Route: 048
     Dates: start: 20220416, end: 20220503
  12. METAMIZOLE [Concomitant]
     Active Substance: METAMIZOLE
     Dosage: 500 MILLIGRAM, TID (3 X 500 MG)
     Dates: start: 20220416, end: 20220503
  13. ALENDRONATE SODIUM [Concomitant]
     Active Substance: ALENDRONATE SODIUM
     Indication: Procedural pain
     Dosage: 70 MILLIGRAM, QW (1X A WEEK)
  14. ALENDRONATE SODIUM [Concomitant]
     Active Substance: ALENDRONATE SODIUM
     Dosage: 70 MILLIGRAM, QW (1X A WEEK)
     Route: 048
  15. ALENDRONATE SODIUM [Concomitant]
     Active Substance: ALENDRONATE SODIUM
     Dosage: 70 MILLIGRAM, QW (1X A WEEK)
     Route: 048
  16. ALENDRONATE SODIUM [Concomitant]
     Active Substance: ALENDRONATE SODIUM
     Dosage: 70 MILLIGRAM, QW (1X A WEEK)
  17. TRAMADOL [Concomitant]
     Active Substance: TRAMADOL
     Indication: Procedural pain
     Dosage: 100 MILLIGRAM, BID (2X 100 MG)
     Dates: start: 20220425, end: 20220503
  18. TRAMADOL [Concomitant]
     Active Substance: TRAMADOL
     Dosage: 100 MILLIGRAM, BID (2X 100 MG)
     Route: 048
     Dates: start: 20220425, end: 20220503
  19. TRAMADOL [Concomitant]
     Active Substance: TRAMADOL
     Dosage: 100 MILLIGRAM, BID (2X 100 MG)
     Route: 048
     Dates: start: 20220425, end: 20220503
  20. TRAMADOL [Concomitant]
     Active Substance: TRAMADOL
     Dosage: 100 MILLIGRAM, BID (2X 100 MG)
     Dates: start: 20220425, end: 20220503

REACTIONS (1)
  - Cerebral haemorrhage [Unknown]

NARRATIVE: CASE EVENT DATE: 20220503
